FAERS Safety Report 10459111 (Version 2)
Quarter: 2019Q3

REPORT INFORMATION
  Report Type: Spontaneous
  Country: DE (occurrence: DE)
  Receive Date: 20140917
  Receipt Date: 20190701
  Transmission Date: 20191004
  Serious: Yes (Congenital Anomaly, Other)
  Sender: FDA-Public Use
  Company Number: DE-MERCK-1409DEU006685

PATIENT
  Age: 1 Day
  Sex: Male
  Weight: 3.37 kg

DRUGS (10)
  1. RAMIPRIL. [Suspect]
     Active Substance: RAMIPRIL
     Indication: HYPERTENSION
     Dosage: 10 MG, ONCE DAILY (QD)
     Route: 064
     Dates: start: 20130310, end: 20130425
  2. METOPROLOL. [Concomitant]
     Active Substance: METOPROLOL
     Indication: HYPERTENSION
     Dosage: 47.5 MG, 2X/DAY (BID)
     Route: 064
     Dates: start: 20130502, end: 20131113
  3. INSULIN [Concomitant]
     Active Substance: INSULIN NOS
     Dosage: UNK
  4. XELEVIA [Suspect]
     Active Substance: SITAGLIPTIN PHOSPHATE
     Indication: TYPE 2 DIABETES MELLITUS
     Dosage: ^100[MG/D]^{100 G GRAM(S), 1 IN 1 DAY}
     Route: 064
     Dates: start: 20130310, end: 20130425
  5. DOPEGYT [Suspect]
     Active Substance: METHYLDOPA
     Indication: HYPERTENSION
     Dosage: 250 MG, 4X/DAY (QID)
     Route: 064
     Dates: start: 20130502, end: 20131113
  6. VITAVERLAN [Concomitant]
     Indication: PROPHYLAXIS OF NEURAL TUBE DEFECT
     Dosage: 0.4 MG, QD
     Route: 064
  7. IODINE. [Concomitant]
     Active Substance: IODINE
     Indication: NEURAL TUBE DEFECT
     Dosage: 0.4 MG, ONCE DAILY (QD)
     Route: 064
  8. METFORMIN [Suspect]
     Active Substance: METFORMIN HYDROCHLORIDE
     Indication: TYPE 2 DIABETES MELLITUS
     Dosage: 1000 MG, 2X/DAY (BID)
     Route: 064
     Dates: start: 20130310, end: 20130425
  9. L-THYROXIN [Concomitant]
     Active Substance: LEVOTHYROXINE SODIUM
     Indication: AUTOIMMUNE THYROIDITIS
     Dosage: 75 MICROGRAM
     Route: 064
     Dates: start: 20130310, end: 20131113
  10. FOLIC ACID. [Concomitant]
     Active Substance: FOLIC ACID
     Indication: NEURAL TUBE DEFECT
     Dosage: 0.4 MILLIGRAM, QD
     Route: 064

REACTIONS (4)
  - Atrial septal defect [Unknown]
  - Diabetic foetopathy [Recovered/Resolved]
  - Premature baby [Unknown]
  - Large for dates baby [Recovering/Resolving]

NARRATIVE: CASE EVENT DATE: 20131113
